FAERS Safety Report 9255480 (Version 1)
Quarter: 2013Q2

REPORT INFORMATION
  Report Type: Spontaneous
  Country: US (occurrence: None)
  Receive Date: 20130423
  Receipt Date: 20130423
  Transmission Date: 20140414
  Serious: No
  Sender: FDA-Public Use
  Company Number: None

PATIENT
  Age: 19 Year
  Sex: Female
  Weight: 28 kg

DRUGS (4)
  1. POLYETHYLENE GLYCOL [Suspect]
     Indication: WHEELCHAIR USER
     Dosage: 1 CAP 1 TIME A DAY PO
     Route: 048
  2. POLYETHYLENE GLYCOL [Suspect]
     Indication: HEMIPARESIS
     Dosage: 1 CAP 1 TIME A DAY PO
     Route: 048
  3. LAXACLEAR [Concomitant]
  4. MIRALAX [Concomitant]

REACTIONS (3)
  - Abdominal pain [None]
  - Neurogenic bladder [None]
  - Dysuria [None]
